FAERS Safety Report 18180862 (Version 1)
Quarter: 2020Q3

REPORT INFORMATION
  Report Type: Spontaneous
  Country: US (occurrence: US)
  Receive Date: 20200821
  Receipt Date: 20200821
  Transmission Date: 20201103
  Serious: No
  Sender: FDA-Public Use
  Company Number: US-GLAXOSMITHKLINE-US2020AMR165485

PATIENT

DRUGS (1)
  1. ANORO ELLIPTA [Suspect]
     Active Substance: UMECLIDINIUM BROMIDE\VILANTEROL TRIFENATATE
     Indication: PRODUCT USED FOR UNKNOWN INDICATION
     Dosage: UNK
     Dates: start: 202008

REACTIONS (7)
  - Pain in extremity [Unknown]
  - Condition aggravated [Unknown]
  - Hypoaesthesia [Unknown]
  - Wheezing [Unknown]
  - Joint swelling [Unknown]
  - Cough [Unknown]
  - Dyspnoea [Unknown]

NARRATIVE: CASE EVENT DATE: 202008
